FAERS Safety Report 5918608-0 (Version None)
Quarter: 2008Q4

REPORT INFORMATION
  Report Type: 
  Country: None (occurrence: None)
  Receive Date: 20081010
  Receipt Date: 20081003
  Transmission Date: 20090506
  Serious: Yes (Other)
  Sender: FDA-Public Use
  Company Number: WAES 0810USA00685

PATIENT
  Age: 66 Year
  Sex: Female

DRUGS (3)
  1. HYZAAR [Suspect]
     Indication: HYPERTENSION
     Dosage: 1 DOSE/DAILY PO
     Route: 048
     Dates: start: 20070420
  2. LIPITOR [Suspect]
     Indication: HYPERLIPIDAEMIA
     Dosage: 10 MG/DAILY PO
     Route: 048
     Dates: start: 20050113
  3. ADALAT [Concomitant]

REACTIONS (4)
  - DIABETES MELLITUS [None]
  - HYPERTENSION [None]
  - INADEQUATE DIET [None]
  - WEIGHT LOSS POOR [None]
